FAERS Safety Report 5934409-1 (Version None)
Quarter: 2008Q4

REPORT INFORMATION
  Report Type: 
  Country: None (occurrence: None)
  Receive Date: 20081010
  Receipt Date: 20070927
  Transmission Date: 20090506
  Serious: Yes (Hospitalization, Other)
  Sender: FDA-Public Use
  Company Number: 2007SP010573

PATIENT
  Age: 68 Year
  Sex: Male
  Weight: 98.8842 kg

DRUGS (2)
  1. TEMOZOLOMIDE [Suspect]
     Indication: GLIOMATOSIS CEREBRI
     Dosage: 325 MG;QD;PO
     Route: 048
     Dates: start: 20070502, end: 20070506
  2. TEGRETOL [Suspect]
     Indication: CONVULSION PROPHYLAXIS
     Dosage: 400 MG;BID;PO
     Route: 048
     Dates: start: 20070420, end: 20070523

REACTIONS (3)
  - APLASTIC ANAEMIA [None]
  - HEMIPARESIS [None]
  - PARAESTHESIA [None]
